FAERS Safety Report 7563612-2 (Version None)
Quarter: 2011Q2

REPORT INFORMATION
  Report Type: 
  Country: None (occurrence: None)
  Receive Date: 20110622
  Receipt Date: 20110616
  Transmission Date: 20111010
  Serious: Yes (Death)
  Sender: FDA-Public Use
  Company Number: FR-ROXANE LABORATORIES, INC.-2011-RO-00833RO

PATIENT
  Age: 51 Year
  Sex: Male

DRUGS (1)
  1. CYCLOPHOSPHAMIDE [Suspect]
     Indication: POLYARTERITIS NODOSA

REACTIONS (1)
  - BLADDER CANCER [None]
